FAERS Safety Report 5881888-4 (Version None)
Quarter: 2008Q3

REPORT INFORMATION
  Report Type: 
  Country: None (occurrence: None)
  Receive Date: 20080912
  Receipt Date: 20080715
  Transmission Date: 20090109
  Serious: Yes (Hospitalization)
  Sender: FDA-Public Use
  Company Number: US-ABBOTT-08P-163-0463684-00

PATIENT
  Sex: Female
  Weight: 60.382 kg

DRUGS (15)
  1. HUMIRA [Suspect]
     Indication: RHEUMATOID ARTHRITIS
     Route: 058
     Dates: start: 20060701, end: 20080711
  2. PREGABALIN [Concomitant]
     Indication: RHEUMATOID ARTHRITIS
     Dosage: 3 CAPS AT HS
     Route: 048
     Dates: start: 20080601
  3. METFORMIN HCL [Concomitant]
     Indication: DIABETES MELLITUS
     Route: 048
     Dates: start: 20000101
  4. METOPROLOL TARTRATE [Concomitant]
     Indication: HYPERTENSION
     Route: 048
     Dates: start: 20040101
  5. METHOTREXATE [Concomitant]
     Indication: RHEUMATOID ARTHRITIS
     Dosage: 3 PILLS WEEKLY
     Route: 048
     Dates: start: 19980101
  6. FOLIC ACID [Concomitant]
     Indication: VITAMIN SUPPLEMENTATION
     Route: 048
     Dates: start: 19980101
  7. OS-CAL [Concomitant]
     Indication: MINERAL SUPPLEMENTATION
     Route: 048
     Dates: start: 19980101
  8. OS-CAL [Concomitant]
     Indication: VITAMIN SUPPLEMENTATION
  9. LISINOPRIL [Concomitant]
     Indication: HYPERTENSION
     Route: 048
     Dates: start: 20040101
  10. MULTI-VITAMIN [Concomitant]
     Indication: VITAMIN SUPPLEMENTATION
     Route: 048
     Dates: start: 20080401
  11. LIPITAC [Concomitant]
     Indication: SUPPLEMENTATION THERAPY
     Route: 048
     Dates: start: 20040101
  12. LEVOTHYROXINE SODIUM [Concomitant]
     Indication: BASEDOW'S DISEASE
     Route: 048
     Dates: start: 19880101
  13. PREDNISONE TAB [Concomitant]
     Indication: RHEUMATOID ARTHRITIS
     Route: 048
     Dates: start: 20050101
  14. ASPIRIN [Concomitant]
     Indication: PROPHYLAXIS
     Route: 048
     Dates: start: 20040101
  15. ALLIUM SATIVUM [Concomitant]
     Indication: PHYTOTHERAPY
     Route: 048
     Dates: start: 20080301

REACTIONS (5)
  - ARTHRALGIA [None]
  - DEHYDRATION [None]
  - HEADACHE [None]
  - KIDNEY INFECTION [None]
  - PHOTOSENSITIVITY REACTION [None]
